FAERS Safety Report 12680516 (Version 3)
Quarter: 2017Q1

REPORT INFORMATION
  Report Type: Report from Study
  Country: BR (occurrence: BR)
  Receive Date: 20160824
  Receipt Date: 20170125
  Transmission Date: 20170428
  Serious: Yes (Other)
  Sender: FDA-Public Use
  Company Number: PHHY2016BR110962

PATIENT
  Age: 49 Year
  Sex: Female
  Weight: 51 kg

DRUGS (3)
  1. AFINITOR [Suspect]
     Active Substance: EVEROLIMUS
     Indication: BREAST CANCER
     Dosage: 10 MG, QD
     Route: 048
     Dates: start: 201603
  2. AROMASIN [Concomitant]
     Active Substance: EXEMESTANE
     Indication: BREAST CANCER
     Dosage: 1 DF, QD
     Route: 048
     Dates: start: 201603
  3. VITAMIN B 1-12 [Concomitant]
     Indication: PRODUCT USED FOR UNKNOWN INDICATION
     Route: 065

REACTIONS (26)
  - Aphthous ulcer [Not Recovered/Not Resolved]
  - Insomnia [Recovering/Resolving]
  - Productive cough [Not Recovered/Not Resolved]
  - Pruritus [Unknown]
  - Blood cholesterol increased [Unknown]
  - Hyperglycaemia [Unknown]
  - Cough [Not Recovered/Not Resolved]
  - Urticaria [Unknown]
  - Flushing [Not Recovered/Not Resolved]
  - Tongue spasm [Unknown]
  - Burning sensation [Not Recovered/Not Resolved]
  - Flatulence [Recovering/Resolving]
  - Pneumonitis [Recovered/Resolved]
  - Stomatitis [Recovering/Resolving]
  - Erythema [Not Recovered/Not Resolved]
  - Rash [Recovered/Resolved]
  - Laryngospasm [Unknown]
  - Diarrhoea [Recovering/Resolving]
  - Pharyngeal oedema [Unknown]
  - Laryngeal oedema [Unknown]
  - Oropharyngeal spasm [Unknown]
  - Oedema mouth [Unknown]
  - Acne [Recovering/Resolving]
  - Sneezing [Unknown]
  - Tongue oedema [Unknown]
  - Metastasis [Unknown]

NARRATIVE: CASE EVENT DATE: 201603
